FAERS Safety Report 12239730 (Version 1)
Quarter: 2016Q2

REPORT INFORMATION
  Report Type: Spontaneous
  Country: US (occurrence: US)
  Receive Date: 20160405
  Receipt Date: 20160405
  Transmission Date: 20160815
  Serious: No
  Sender: FDA-Public Use
  Company Number: US-ROCHE-1621652

PATIENT
  Age: 79 Year
  Sex: Female

DRUGS (1)
  1. ERIVEDGE [Suspect]
     Active Substance: VISMODEGIB
     Indication: BASAL CELL CARCINOMA
     Route: 048
     Dates: start: 20150722

REACTIONS (6)
  - Constipation [Unknown]
  - Hepatic enzyme increased [Unknown]
  - Alopecia [Unknown]
  - Liver disorder [Unknown]
  - Diarrhoea [Unknown]
  - Fatigue [Unknown]
